FAERS Safety Report 7226127-7 (Version None)
Quarter: 2011Q1

REPORT INFORMATION
  Report Type: 
  Country: None (occurrence: None)
  Receive Date: 20110114
  Receipt Date: 20110104
  Transmission Date: 20110831
  Serious: Yes (Death, Hospitalization, Other)
  Sender: FDA-Public Use
  Company Number: US-BIOGENIDEC-2010BI043265

PATIENT
  Age: 33 Year
  Sex: Female

DRUGS (1)
  1. TYSABRI [Suspect]
     Indication: MULTIPLE SCLEROSIS
     Route: 042
     Dates: start: 20100301, end: 20101129

REACTIONS (6)
  - TOOTH ABSCESS [None]
  - ARTHRALGIA [None]
  - CARDIAC ARREST [None]
  - SEPSIS [None]
  - RESTLESS LEGS SYNDROME [None]
  - FALL [None]
